APPROVED DRUG PRODUCT: NADOLOL
Active Ingredient: NADOLOL
Strength: 80MG
Dosage Form/Route: TABLET;ORAL
Application: A074501 | Product #003 | TE Code: AB
Applicant: SANDOZ INC
Approved: Nov 9, 1995 | RLD: No | RS: No | Type: RX